FAERS Safety Report 5594223-6 (Version None)
Quarter: 2007Q4

REPORT INFORMATION
  Report Type: 
  Country: None (occurrence: None)
  Receive Date: 20071218
  Receipt Date: 20070702
  Transmission Date: 20080405
  Serious: Yes (Death, Hospitalization)
  Sender: FDA-Public Use
  Company Number: 2007054951

PATIENT
  Age: 50 Year
  Sex: Male

DRUGS (5)
  1. BEXTRA [Suspect]
     Indication: PAIN
     Dosage: 20 MG (20 MG, 1 IN 1 D)
     Dates: start: 20041029, end: 20041029
  2. VIOXX [Suspect]
     Indication: PAIN
     Dosage: 25 MG (25 MG, 1 IN 1 D)
     Dates: start: 20031013, end: 20040807
  3. HYDROCODONE (HYDROCODONE) [Concomitant]
  4. PROPOXYPHENE (DEXTROPROPOXYPHENE) [Concomitant]
  5. KETOROLAC (KETOROLAC) [Concomitant]

REACTIONS (1)
  - MYOCARDIAL INFARCTION [None]
